FAERS Safety Report 6975177-4 (Version None)
Quarter: 2010Q3

REPORT INFORMATION
  Report Type: 
  Country: None (occurrence: None)
  Receive Date: 20100910
  Receipt Date: 20090217
  Transmission Date: 20110219
  Serious: No
  Sender: FDA-Public Use
  Company Number: US-WYE-H08252109

PATIENT
  Sex: Female
  Weight: 80.36 kg

DRUGS (9)
  1. PRISTIQ [Suspect]
     Indication: DEPRESSION
     Route: 048
     Dates: start: 20080213
  2. DEPAKOTE [Concomitant]
  3. IMIPRAMINE [Concomitant]
  4. LYRICA [Concomitant]
  5. HYDROCODONE [Concomitant]
  6. SOMA [Concomitant]
  7. ALPRAZOLAM [Concomitant]
  8. ZOLOFT [Concomitant]
  9. METHADONE [Concomitant]

REACTIONS (1)
  - FATIGUE [None]
